FAERS Safety Report 19010238 (Version 2)
Quarter: 2021Q1

REPORT INFORMATION
  Report Type: Spontaneous
  Country: JP (occurrence: JP)
  Receive Date: 20210315
  Receipt Date: 20210331
  Transmission Date: 20210420
  Serious: Yes (Death, Other)
  Sender: FDA-Public Use
  Company Number: JP-DSJP-DSJ-2021-106814AA

PATIENT
  Age: 65 Year
  Sex: Female
  Weight: 54 kg

DRUGS (4)
  1. LIXIANA TABLETS [Suspect]
     Active Substance: EDOXABAN TOSYLATE
     Dosage: 30MG/DAY
     Route: 048
     Dates: start: 20201106, end: 20201115
  2. NIVOLUMAB [Concomitant]
     Active Substance: NIVOLUMAB
     Dosage: 240MG/DAY
     Route: 065
  3. APIXABAN [Suspect]
     Active Substance: APIXABAN
     Dosage: 10MG/DAY
     Route: 065
     Dates: start: 20201011, end: 20201015
  4. LIXIANA TABLETS [Suspect]
     Active Substance: EDOXABAN TOSYLATE
     Indication: EMBOLISM VENOUS
     Dosage: 30MG/DAY
     Route: 048
     Dates: start: 20201007, end: 20201010

REACTIONS (3)
  - Anaemia [Unknown]
  - General physical health deterioration [Fatal]
  - Faeces discoloured [Unknown]

NARRATIVE: CASE EVENT DATE: 20201015
